FAERS Safety Report 17474260 (Version 1)
Quarter: 2020Q1

REPORT INFORMATION
  Report Type: Report from Study
  Country: CA (occurrence: CA)
  Receive Date: 20200228
  Receipt Date: 20200228
  Transmission Date: 20200409
  Serious: Yes (Other)
  Sender: FDA-Public Use
  Company Number: CA-JNJFOC-20190322746

PATIENT
  Age: 52 Year
  Sex: Female

DRUGS (2)
  1. STELARA [Suspect]
     Active Substance: USTEKINUMAB
     Route: 058
     Dates: start: 20181030
  2. STELARA [Suspect]
     Active Substance: USTEKINUMAB
     Indication: CROHN^S DISEASE
     Route: 058

REACTIONS (8)
  - Product use issue [Unknown]
  - Intestinal stenosis [Recovering/Resolving]
  - Therapeutic product effect decreased [Unknown]
  - Toothache [Unknown]
  - Off label use [Unknown]
  - Crohn^s disease [Not Recovered/Not Resolved]
  - Hypersomnia [Unknown]
  - Cystitis [Unknown]

NARRATIVE: CASE EVENT DATE: 20190305
